FAERS Safety Report 16814383 (Version 1)
Quarter: 2019Q3

REPORT INFORMATION
  Report Type: Spontaneous
  Country: US (occurrence: US)
  Receive Date: 20190725
  Receipt Date: 20190725
  Transmission Date: 20191005
  Serious: Yes (Other)
  Sender: FDA-Public Use
  Company Number: None

PATIENT
  Age: 34 Year
  Sex: Female
  Weight: 79.38 kg

DRUGS (1)
  1. ARTIFICIAL TEARS LUBRICANT EYE DROPS [Suspect]
     Active Substance: GLYCERIN\PROPYLENE GLYCOL
     Indication: EYE DISORDER
     Dosage: ?          QUANTITY:2 DROPS;OTHER FREQUENCY:6 TIMES A D PER DR;OTHER ROUTE:DROPED IN EYES?
     Dates: start: 20190521, end: 20190531

REACTIONS (2)
  - Eye irritation [None]
  - Product quality issue [None]

NARRATIVE: CASE EVENT DATE: 20190531
